FAERS Safety Report 18541034 (Version 2)
Quarter: 2020Q4

REPORT INFORMATION
  Report Type: Spontaneous
  Country: US (occurrence: US)
  Receive Date: 20201124
  Receipt Date: 20201203
  Transmission Date: 20210114
  Serious: Yes (Other)
  Sender: FDA-Public Use
  Company Number: US-ASTRAZENECA-2020SF53406

PATIENT
  Age: 1046 Month
  Sex: Male
  Weight: 90.7 kg

DRUGS (5)
  1. LOSARTAN. [Concomitant]
     Active Substance: LOSARTAN
     Indication: BLOOD PRESSURE ABNORMAL
     Route: 048
  2. EYE DROP [Concomitant]
     Active Substance: UNSPECIFIED INGREDIENT
     Indication: GLAUCOMA
     Dosage: AT NIGHT
     Route: 047
  3. PROAIR HFA [Concomitant]
     Active Substance: ALBUTEROL SULFATE
     Indication: EMERGENCY CARE
     Dosage: 90.0UG AS REQUIRED
     Route: 055
  4. ALBUTEROL SULFATE NEBULIZER [Concomitant]
     Active Substance: ALBUTEROL SULFATE
     Indication: CHRONIC OBSTRUCTIVE PULMONARY DISEASE
     Dosage: 2.5 MG UP TO 4 TIMES DAILY AS NEEDED
     Route: 055
  5. SYMBICORT [Suspect]
     Active Substance: BUDESONIDE\FORMOTEROL FUMARATE DIHYDRATE
     Indication: CHRONIC OBSTRUCTIVE PULMONARY DISEASE
     Dosage: 160/4.5MCG 2 PUFFS TWICE DAILY
     Route: 055

REACTIONS (5)
  - Glaucoma [Unknown]
  - Eye disorder [Not Recovered/Not Resolved]
  - Product dose omission issue [Unknown]
  - Drug delivery system issue [Unknown]
  - Incorrect dose administered by device [Unknown]

NARRATIVE: CASE EVENT DATE: 202010
